FAERS Safety Report 6971501-7 (Version None)
Quarter: 2010Q3

REPORT INFORMATION
  Report Type: 
  Country: None (occurrence: None)
  Receive Date: 20100908
  Receipt Date: 20100609
  Transmission Date: 20110219
  Serious: Yes (Other)
  Sender: FDA-Public Use
  Company Number: JP-PFIZER INC-2010110759

PATIENT
  Age: 68 Year
  Sex: Male

DRUGS (1)
  1. SEIBULE [Suspect]
     Dosage: 150 MG PER DAY
     Route: 048
     Dates: start: 20090722, end: 20100609

REACTIONS (2)
  - HEPATIC FUNCTION ABNORMAL [None]
  - PNEUMATOSIS INTESTINALIS [None]
